FAERS Safety Report 9231079 (Version 3)
Quarter: 2013Q2

REPORT INFORMATION
  Report Type: Spontaneous
  Country: FR (occurrence: FR)
  Receive Date: 20130415
  Receipt Date: 20130523
  Transmission Date: 20140414
  Serious: Yes (Hospitalization)
  Sender: FDA-Public Use
  Company Number: FR-ROCHE-1212614

PATIENT
  Age: 92 Year
  Sex: Female

DRUGS (9)
  1. ROCEPHINE [Suspect]
     Indication: BRONCHIAL DISORDER
     Route: 042
     Dates: start: 20121229, end: 20130112
  2. SOLU-MEDROL [Suspect]
     Indication: BRONCHIAL DISORDER
     Route: 030
     Dates: start: 20121229, end: 20130102
  3. SOLU-MEDROL [Suspect]
     Route: 030
     Dates: start: 20130102, end: 20130124
  4. CIFLOX [Suspect]
     Indication: BRONCHIAL DISORDER
     Route: 048
     Dates: start: 20130118, end: 20130124
  5. AUGMENTIN [Suspect]
     Indication: BRONCHIAL DISORDER
     Route: 048
     Dates: start: 20121223, end: 20121229
  6. AMLOR [Concomitant]
     Indication: HYPERTENSION
     Route: 048
  7. ATACAND [Concomitant]
     Indication: HYPERTENSION
     Route: 048
  8. PLAVIX [Concomitant]
     Indication: MYOCARDIAL ISCHAEMIA
     Route: 048
  9. EUPRESSYL [Concomitant]
     Indication: HYPERTENSION
     Route: 048

REACTIONS (2)
  - Renal failure acute [Recovering/Resolving]
  - Renal tubular disorder [Recovering/Resolving]
